APPROVED DRUG PRODUCT: CAVERJECT
Active Ingredient: ALPROSTADIL
Strength: 0.01MG/ML
Dosage Form/Route: INJECTABLE;INJECTION
Application: N020755 | Product #002
Applicant: PFIZER INC
Approved: Oct 1, 1997 | RLD: No | RS: No | Type: DISCN